FAERS Safety Report 15831945 (Version 1)
Quarter: 2019Q1

REPORT INFORMATION
  Report Type: Spontaneous
  Country: CA (occurrence: CA)
  Receive Date: 20190115
  Receipt Date: 20190115
  Transmission Date: 20190417
  Serious: Yes (Other)
  Sender: FDA-Public Use
  Company Number: None

PATIENT
  Age: 8 Year
  Sex: Male
  Weight: 27 kg

DRUGS (1)
  1. AMOXICILLIN CHEWABLE TABLET, DIN 02036355 [Suspect]
     Active Substance: AMOXICILLIN
     Indication: PULPITIS DENTAL
     Dosage: ?          QUANTITY:1 TABLET(S);?
     Route: 048
     Dates: start: 20181220, end: 20181227

REACTIONS (2)
  - Hypersensitivity [None]
  - Skin discolouration [None]

NARRATIVE: CASE EVENT DATE: 20181227
